FAERS Safety Report 10748869 (Version 1)
Quarter: 2015Q1

REPORT INFORMATION
  Report Type: Spontaneous
  Country: SE (occurrence: SE)
  Receive Date: 20150129
  Receipt Date: 20150129
  Transmission Date: 20150721
  Serious: Yes (Life-Threatening, Hospitalization)
  Sender: FDA-Public Use
  Company Number: SE-ASTRAZENECA-2015SE06465

PATIENT
  Age: 23 Year
  Sex: Male

DRUGS (4)
  1. IMOVANE [Suspect]
     Active Substance: ZOPICLONE
     Dosage: 4 TABLETS, 30 MG
     Route: 065
     Dates: start: 20140207, end: 20140207
  2. THERALEN [Concomitant]
     Active Substance: TRIMEPRAZINE
  3. SEROQUEL [Suspect]
     Active Substance: QUETIAPINE FUMARATE
     Dosage: 2-3 TABLETS
     Route: 048
     Dates: start: 20140207, end: 20140207
  4. ABILIFY [Concomitant]
     Active Substance: ARIPIPRAZOLE

REACTIONS (5)
  - Suicide attempt [Recovered/Resolved]
  - Blood alcohol increased [Unknown]
  - Toxicity to various agents [Recovered/Resolved]
  - Hypotension [Unknown]
  - Fatigue [Unknown]

NARRATIVE: CASE EVENT DATE: 20140207
